FAERS Safety Report 4388114-6 (Version None)
Quarter: 2004Q2

REPORT INFORMATION
  Report Type: 
  Country: None (occurrence: None)
  Receive Date: 20040630
  Receipt Date: 20040630
  Transmission Date: 20050107
  Serious: Yes (Other)
  Sender: FDA-Public Use
  Company Number: None

PATIENT
  Age: 72 Year
  Sex: Female
  Weight: 95.2554 kg

DRUGS (14)
  1. FUROSEMIDE [Suspect]
     Indication: OEDEMA
     Dosage: 1 QD PO
     Route: 048
  2. AZMACORT [Concomitant]
  3. ASTELIN [Concomitant]
  4. SYNTHROID [Concomitant]
  5. DIFLUCAN [Concomitant]
  6. CELEXA [Concomitant]
  7. AMITRIPTYLINE HCL [Concomitant]
  8. KCL TAB [Concomitant]
  9. NADOLOL [Concomitant]
  10. PREMARIN [Concomitant]
  11. HUMIBID [Concomitant]
  12. GENTAMICIN [Concomitant]
  13. CLIINDAMYCIN [Concomitant]
  14. GEMFIBROZIL [Concomitant]

REACTIONS (2)
  - DYSPNOEA [None]
  - OEDEMA [None]
